FAERS Safety Report 23584861 (Version 3)
Quarter: 2024Q1

REPORT INFORMATION
  Report Type: Spontaneous
  Country: JP (occurrence: JP)
  Receive Date: 20240301
  Receipt Date: 20240322
  Transmission Date: 20240409
  Serious: Yes (Other)
  Sender: FDA-Public Use
  Company Number: JP-UCBJ-CD202401603UCBPHAPROD

PATIENT
  Age: 34 Year
  Sex: Male

DRUGS (4)
  1. LEVETIRACETAM [Suspect]
     Active Substance: LEVETIRACETAM
     Indication: Generalised tonic-clonic seizure
     Dosage: UNK
     Route: 048
  2. LEVETIRACETAM [Suspect]
     Active Substance: LEVETIRACETAM
     Indication: Temporal lobe epilepsy
     Dosage: 1500 MILLIGRAM/DAY
     Route: 048
  3. ACETAZOLAMIDE [Suspect]
     Active Substance: ACETAZOLAMIDE
     Indication: Generalised tonic-clonic seizure
     Dosage: 125 MILLIGRAM/DAY
     Route: 048
  4. ACETAZOLAMIDE [Suspect]
     Active Substance: ACETAZOLAMIDE
     Indication: Temporal lobe epilepsy

REACTIONS (3)
  - Epilepsy [Recovering/Resolving]
  - Taste disorder [Recovered/Resolved]
  - Drug ineffective [Unknown]
